FAERS Safety Report 8990545 (Version 1)
Quarter: 2012Q4

REPORT INFORMATION
  Report Type: 
  Country: NL (occurrence: NL)
  Receive Date: 20121228
  Receipt Date: 20121228
  Transmission Date: 20130627
  Serious: Yes (Disabling)
  Sender: FDA-Public Use
  Company Number: NL-ABBOTT-12P-114-0997484-00

PATIENT
  Sex: Male

DRUGS (2)
  1. HUMIRA PEN [Suspect]
     Indication: RHEUMATOID ARTHRITIS
     Route: 058
     Dates: start: 201112, end: 201203
  2. TREATMENT FOR FUNGAL INFECTION [Concomitant]
     Indication: FUNGAL INFECTION
     Route: 061

REACTIONS (8)
  - Erectile dysfunction [Not Recovered/Not Resolved]
  - Loss of consciousness [Recovered/Resolved]
  - Bursitis [Recovering/Resolving]
  - Carpal tunnel syndrome [Recovering/Resolving]
  - Genital infection fungal [Recovered/Resolved]
  - Ejaculation failure [Not Recovered/Not Resolved]
  - Malaise [Not Recovered/Not Resolved]
  - Fatigue [Recovering/Resolving]
